FAERS Safety Report 16608514 (Version 1)
Quarter: 2019Q3

REPORT INFORMATION
  Report Type: Spontaneous
  Country: FR (occurrence: FR)
  Receive Date: 20190722
  Receipt Date: 20190722
  Transmission Date: 20191004
  Serious: Yes (Hospitalization)
  Sender: FDA-Public Use
  Company Number: FR-PFIZER INC-2019304069

PATIENT
  Age: 68 Year
  Sex: Female
  Weight: 45 kg

DRUGS (18)
  1. PRAVASTATIN SODIUM. [Concomitant]
     Active Substance: PRAVASTATIN SODIUM
     Indication: DYSLIPIDAEMIA
     Dosage: 40 MG, 1X/DAY (0-0-1)
     Route: 048
     Dates: start: 201709
  2. ALPRAZOLAM. [Concomitant]
     Active Substance: ALPRAZOLAM
     Indication: ANXIETY
     Dosage: 0.25 MG, 1X/DAY (0-0-1)
     Route: 048
     Dates: start: 201902
  3. CARBOPLATINE HOSPIRA [Suspect]
     Active Substance: CARBOPLATIN
     Indication: SMALL CELL LUNG CANCER
     Dosage: 475 MG, CYCLIC
     Route: 042
     Dates: start: 20190110, end: 20190513
  4. FUROSEMID [Concomitant]
     Active Substance: FUROSEMIDE
     Indication: HYPERTENSION
     Dosage: 60 MG, 1X/DAY (1.5-0-0)
     Route: 048
     Dates: start: 201902
  5. LEVOTHYROX [Concomitant]
     Active Substance: LEVOTHYROXINE
     Indication: HYPOTHYROIDISM
     Dosage: 75 UG, 1X/DAY (1-0-0)
     Route: 048
  6. PREDNISONE. [Concomitant]
     Active Substance: PREDNISONE
     Indication: ORGANISING PNEUMONIA
     Dosage: 20 MG, 1X/DAY
     Route: 048
     Dates: start: 201510
  7. IPRATROPIUM BROMIDE MONOHYDRATE [Concomitant]
     Active Substance: IPRATROPIUM BROMIDE
     Indication: CHRONIC OBSTRUCTIVE PULMONARY DISEASE
     Dosage: 1.5 MG, 3X/DAY (1-1- 1)
     Route: 055
     Dates: start: 201905
  8. ZARZIO [Concomitant]
     Active Substance: FILGRASTIM
     Indication: FEBRILE NEUTROPENIA
     Dosage: 1 DF, 1X/DAY
     Route: 058
     Dates: start: 20190517, end: 20190522
  9. PANTOPRAZOLE [Concomitant]
     Active Substance: PANTOPRAZOLE
     Indication: GASTROOESOPHAGEAL REFLUX DISEASE
     Dosage: 1 DF, 1X/DAY (0-0-1)
     Route: 048
     Dates: start: 201901
  10. KARDEGIC [Concomitant]
     Active Substance: ASPIRIN DL-LYSINE
     Indication: PROPHYLAXIS
     Dosage: UNK (1-0-0)
     Route: 048
     Dates: start: 201709
  11. NEFOPAM HYDROCHLORIDE [Concomitant]
     Active Substance: NEFOPAM HYDROCHLORIDE
     Indication: ANALGESIC INTERVENTION SUPPORTIVE THERAPY
     Dosage: 20 MG, AS NEEDED (MAX 4 PER DAY)
     Route: 048
     Dates: start: 201905
  12. SALBUTAMOL [Concomitant]
     Active Substance: ALBUTEROL
     Indication: CHRONIC OBSTRUCTIVE PULMONARY DISEASE
     Dosage: 15 MG, 3X/DAY (1-1- 1)
     Route: 055
     Dates: start: 201905
  13. ZOPHREN [ONDANSETRON HYDROCHLORIDE] [Concomitant]
     Active Substance: ONDANSETRON
     Indication: ANTIEMETIC SUPPORTIVE CARE
     Dosage: 1 DF, AS NEEDED
     Route: 048
     Dates: start: 201902, end: 201905
  14. IPRATROPIUM BROMIDE\FENOTEROL HYDROBROMIDE [Concomitant]
     Active Substance: FENOTEROL HYDROBROMIDE\IPRATROPIUM BROMIDE
     Indication: CHRONIC OBSTRUCTIVE PULMONARY DISEASE
     Dosage: 1 DF, AS NEEDED
     Route: 055
     Dates: start: 201709
  15. ULTIBRO BREEZHALER [Concomitant]
     Active Substance: GLYCOPYRRONIUM\INDACATEROL
     Indication: CHRONIC OBSTRUCTIVE PULMONARY DISEASE
     Dosage: 1 DF, 1X/DAY (1-0-0)
     Route: 055
     Dates: start: 201709
  16. ETOPOSIDE MYLAN [Suspect]
     Active Substance: ETOPOSIDE
     Indication: SMALL CELL LUNG CANCER
     Dosage: 33 MG, CYCLIC (D1, D2,D3)
     Route: 042
     Dates: start: 20190110, end: 20190515
  17. DILTIAZEM HYDROCHLORIDE. [Concomitant]
     Active Substance: DILTIAZEM HYDROCHLORIDE
     Indication: HYPERTENSION
     Dosage: 300 MG, 1X/DAY (1-0-0)
     Route: 048
     Dates: start: 201709
  18. DIFFU K [Concomitant]
     Active Substance: POTASSIUM CHLORIDE
     Indication: HYPOKALAEMIA
     Dosage: 2400 MG, DAILY
     Route: 048
     Dates: start: 201902

REACTIONS (5)
  - Ventricular dysfunction [Not Recovered/Not Resolved]
  - Chronic obstructive pulmonary disease [Unknown]
  - Troponin increased [Recovered/Resolved]
  - Cough [Unknown]
  - Dyspnoea [Recovering/Resolving]

NARRATIVE: CASE EVENT DATE: 2019
